FAERS Safety Report 6839751-8 (Version None)
Quarter: 2010Q3

REPORT INFORMATION
  Report Type: 
  Country: None (occurrence: None)
  Receive Date: 20100714
  Receipt Date: 20100705
  Transmission Date: 20110219
  Serious: Yes (Life-Threatening, Hospitalization)
  Sender: FDA-Public Use
  Company Number: JP-NOVOPROD-310054

PATIENT
  Age: 17 Year
  Sex: Female
  Weight: 56 kg

DRUGS (4)
  1. NOVORAPID CHU FLEXPEN [Suspect]
     Indication: TYPE 1 DIABETES MELLITUS
     Dosage: 30 U, QD
     Route: 058
     Dates: start: 20050801
  2. NOVORAPID CHU FLEXPEN [Suspect]
     Dosage: UNK
  3. LEVEMIR [Suspect]
     Indication: TYPE 1 DIABETES MELLITUS
     Dosage: UNK
     Route: 058
     Dates: start: 20090805
  4. LEVEMIR [Suspect]
     Dosage: UNK
     Dates: end: 20100517

REACTIONS (6)
  - ANTI-INSULIN ANTIBODY POSITIVE [None]
  - BLOOD GLUCOSE DECREASED [None]
  - BLOOD GLUCOSE FLUCTUATION [None]
  - HYPOGLYCAEMIA [None]
  - HYPOGLYCAEMIC SEIZURE [None]
  - HYPOGLYCAEMIC UNCONSCIOUSNESS [None]
